FAERS Safety Report 9484998 (Version 1)
Quarter: 2013Q3

REPORT INFORMATION
  Report Type: Spontaneous
  Country: US (occurrence: US)
  Receive Date: 20130828
  Receipt Date: 20130828
  Transmission Date: 20140515
  Serious: No
  Sender: FDA-Public Use
  Company Number: US-ABBOTT-13P-163-1131408-00

PATIENT
  Age: 54 Year
  Sex: Male
  Weight: 77.18 kg

DRUGS (12)
  1. ANDROGEL [Suspect]
     Indication: BLOOD TESTOSTERONE DECREASED
     Dates: end: 201308
  2. ANDROGEL [Suspect]
     Dates: start: 201308
  3. LOSARTIN [Concomitant]
     Indication: HYPERTENSION
  4. VITAMIN B COMP [Concomitant]
     Indication: SUPPLEMENTATION THERAPY
  5. GLUCOSAMINE [Concomitant]
     Indication: SUPPLEMENTATION THERAPY
  6. CONDROITINA [Concomitant]
     Indication: SUPPLEMENTATION THERAPY
  7. LUTEIN WITH BILBERRY [Concomitant]
     Indication: SUPPLEMENTATION THERAPY
  8. VITAMIN D NOS [Concomitant]
     Indication: SUPPLEMENTATION THERAPY
  9. BETA CAROTENE [Concomitant]
     Indication: SUPPLEMENTATION THERAPY
  10. SELENIUM [Concomitant]
     Indication: SUPPLEMENTATION THERAPY
  11. KELP [Concomitant]
     Indication: SUPPLEMENTATION THERAPY
  12. ZINC [Concomitant]
     Indication: SUPPLEMENTATION THERAPY

REACTIONS (2)
  - Blood testosterone decreased [Not Recovered/Not Resolved]
  - Drug administration error [Recovered/Resolved]
